FAERS Safety Report 12643783 (Version 2)
Quarter: 2016Q4

REPORT INFORMATION
  Report Type: Spontaneous
  Country: DE (occurrence: DE)
  Receive Date: 20160811
  Receipt Date: 20161108
  Transmission Date: 20170207
  Serious: Yes (Hospitalization, Other)
  Sender: FDA-Public Use
  Company Number: DE-SA-2016SA143716

PATIENT
  Age: 26 Year
  Sex: Male

DRUGS (1)
  1. ALEMTUZUMAB [Suspect]
     Active Substance: ALEMTUZUMAB
     Indication: RELAPSING-REMITTING MULTIPLE SCLEROSIS
     Route: 065

REACTIONS (14)
  - Immune thrombocytopenic purpura [Unknown]
  - Petechiae [Unknown]
  - Tachycardia [Unknown]
  - Fatigue [Unknown]
  - Haemolytic anaemia [Unknown]
  - Basedow^s disease [Unknown]
  - Thyroid hormones increased [Unknown]
  - Blood thyroid stimulating hormone decreased [Unknown]
  - Tri-iodothyronine increased [Unknown]
  - Hyperhidrosis [Unknown]
  - Dyspnoea [Unknown]
  - Mouth haemorrhage [Unknown]
  - Anti-thyroid antibody positive [Unknown]
  - Thyroxine free increased [Unknown]
